FAERS Safety Report 11860721 (Version 2)
Quarter: 2016Q1

REPORT INFORMATION
  Report Type: Spontaneous
  Country: US (occurrence: US)
  Receive Date: 20151222
  Receipt Date: 20160119
  Transmission Date: 20160526
  Serious: Yes (Other)
  Sender: FDA-Public Use
  Company Number: US-JNJFOC-20151217301

PATIENT
  Age: 52 Year
  Sex: Female
  Weight: 66.68 kg

DRUGS (2)
  1. REMICADE [Suspect]
     Active Substance: INFLIXIMAB
     Indication: COLITIS
     Route: 042
     Dates: start: 20110203, end: 20151216
  2. REMICADE [Suspect]
     Active Substance: INFLIXIMAB
     Indication: CROHN^S DISEASE
     Route: 042
     Dates: start: 20110203, end: 20151216

REACTIONS (2)
  - Drug ineffective [Unknown]
  - Breast cancer [Unknown]

NARRATIVE: CASE EVENT DATE: 20151015
